FAERS Safety Report 4889194-1 (Version None)
Quarter: 2006Q1

REPORT INFORMATION
  Report Type: 
  Country: None (occurrence: None)
  Receive Date: 20060120
  Receipt Date: 20060120
  Transmission Date: 20060701
  Serious: Yes (Hospitalization)
  Sender: FDA-Public Use
  Company Number: None

PATIENT
  Age: 60 Year
  Sex: Female

DRUGS (1)
  1. TIKOSYN [Suspect]
     Dosage: 250 MCG TWICE A DAY

REACTIONS (1)
  - TORSADE DE POINTES [None]
